FAERS Safety Report 24731308 (Version 1)
Quarter: 2024Q4

REPORT INFORMATION
  Report Type: Spontaneous
  Country: CN (occurrence: CN)
  Receive Date: 20241213
  Receipt Date: 20241213
  Transmission Date: 20250115
  Serious: Yes (Hospitalization)
  Sender: PFIZER
  Company Number: CN-PFIZER INC-PV202400160088

PATIENT
  Age: 10 Day
  Sex: Male
  Weight: 1.1 kg

DRUGS (3)
  1. ZITHROMAX [Interacting]
     Active Substance: AZITHROMYCIN DIHYDRATE
     Indication: Pneumonitis
     Dosage: 0.01 G, 1X/DAY; VIA PUMP INJECTION/MICROPUMP
     Route: 042
     Dates: start: 20241115, end: 20241117
  2. ZITHROMAX [Interacting]
     Active Substance: AZITHROMYCIN DIHYDRATE
     Indication: Ureaplasma infection
  3. MOTRIN [Interacting]
     Active Substance: IBUPROFEN
     Indication: Patent ductus arteriosus repair
     Dosage: 0.27 ML, 1X/DAY
     Dates: start: 20241116, end: 20241117

REACTIONS (7)
  - Drug interaction [Recovering/Resolving]
  - Feeding intolerance [Recovering/Resolving]
  - Fluid retention [Recovering/Resolving]
  - Abdominal distension [Recovering/Resolving]
  - Gastrointestinal sounds abnormal [Recovering/Resolving]
  - Off label use [Unknown]
  - Off label use [Unknown]

NARRATIVE: CASE EVENT DATE: 20241115
